FAERS Safety Report 7687853-9 (Version None)
Quarter: 2011Q3

REPORT INFORMATION
  Report Type: 
  Country: None (occurrence: None)
  Receive Date: 20110817
  Receipt Date: 20110808
  Transmission Date: 20111222
  Serious: Yes (Other)
  Sender: FDA-Public Use
  Company Number: US-JNJFOC-20110804637

PATIENT
  Age: 77 Year
  Sex: Male

DRUGS (2)
  1. MS MYLANTA GAS MINT TABLETS [Suspect]
     Indication: GASTROOESOPHAGEAL REFLUX DISEASE
     Route: 048
  2. GLYBURIDE [Concomitant]
     Indication: DIABETES MELLITUS
     Route: 065

REACTIONS (2)
  - OFF LABEL USE [None]
  - BLOOD PRESSURE INCREASED [None]
